FAERS Safety Report 5391597-6 (Version None)
Quarter: 2007Q3

REPORT INFORMATION
  Report Type: 
  Country: None (occurrence: None)
  Receive Date: 20070719
  Receipt Date: 20070709
  Transmission Date: 20080115
  Serious: Yes (Disabling, Other)
  Sender: FDA-Public Use
  Company Number: GB-PFIZER INC-2007056250

PATIENT
  Age: 81 Year
  Sex: Female
  Weight: 69 kg

DRUGS (7)
  1. EXEMESTANE [Suspect]
     Indication: BREAST CANCER
     Route: 048
     Dates: start: 20070301, end: 20070615
  2. CITALOPRAM [Concomitant]
  3. COMBIVENT [Concomitant]
  4. FUROSEMIDE [Concomitant]
  5. IMDUR [Concomitant]
  6. LANSOPRAZOLE [Concomitant]
  7. SERETIDE [Concomitant]

REACTIONS (3)
  - ARTHRALGIA [None]
  - BLOOD URIC ACID INCREASED [None]
  - JOINT SWELLING [None]
